FAERS Safety Report 15402697 (Version 1)
Quarter: 2018Q3

REPORT INFORMATION
  Report Type: Spontaneous
  Country: US (occurrence: US)
  Receive Date: 20180919
  Receipt Date: 20180919
  Transmission Date: 20181010
  Serious: No
  Sender: FDA-Public Use
  Company Number: US-AMNEAL PHARMACEUTICALS-2017AMN00927

PATIENT
  Sex: Female

DRUGS (1)
  1. HYDROCODONE AND ACETAMINOPHEN [Suspect]
     Active Substance: ACETAMINOPHEN\HYDROCODONE
     Indication: SPINAL FUSION SURGERY
     Dosage: UNK
     Route: 065

REACTIONS (2)
  - Product quality issue [Unknown]
  - Drug effect decreased [Unknown]
